FAERS Safety Report 5946189-4 (Version None)
Quarter: 2008Q4

REPORT INFORMATION
  Report Type: 
  Country: None (occurrence: None)
  Receive Date: 20081106
  Receipt Date: 20081029
  Transmission Date: 20090506
  Serious: Yes (Hospitalization)
  Sender: FDA-Public Use
  Company Number: 2008AL011483

PATIENT
  Age: 53 Year
  Sex: Male

DRUGS (1)
  1. BACLOFEN [Suspect]
     Indication: MUSCLE SPASMS
     Dosage: 5 MG;PO
     Route: 048

REACTIONS (12)
  - AUTONOMIC DYSREFLEXIA [None]
  - BRADYCARDIA [None]
  - CARDIAC ARREST [None]
  - DELIRIUM [None]
  - FALL [None]
  - HALLUCINATION [None]
  - HYPERVENTILATION [None]
  - HYPOTENSION [None]
  - MUSCLE SPASMS [None]
  - MUSCLE SPASTICITY [None]
  - RESPIRATORY FAILURE [None]
  - TACHYCARDIA [None]
